FAERS Safety Report 7506592 (Version 2)
Quarter: 2013Q2

REPORT INFORMATION
  Report Type: Spontaneous
  Country: US (occurrence: US)
  Receive Date: 20100728
  Receipt Date: 20130604
  Transmission Date: 20140414
  Serious: Yes (Other)
  Sender: FDA-Public Use
  Company Number: US-AMGEN-QUU426313

PATIENT
  Age: 68 Year
  Sex: Female

DRUGS (4)
  1. NPLATE [Suspect]
     Indication: IDIOPATHIC THROMBOCYTOPENIC PURPURA
     Dosage: 1 MUG/KG, QWK
     Dates: start: 20091125
  2. NPLATE [Suspect]
     Dosage: 500 MUG, UNK
  3. FOLIC ACID [Concomitant]
     Dosage: UNK UNK, UNK
  4. MULTIVITAMINS [Concomitant]
     Dosage: UNK UNK, UNK

REACTIONS (10)
  - Platelet count abnormal [Unknown]
  - Viral infection [Unknown]
  - Rhinorrhoea [Unknown]
  - Nasopharyngitis [Unknown]
  - Carpal tunnel syndrome [Unknown]
  - Arthritis [Unknown]
  - Fatigue [Unknown]
  - Stress [Unknown]
  - Musculoskeletal stiffness [Unknown]
  - Platelet count decreased [Unknown]
